FAERS Safety Report 4392714-7 (Version None)
Quarter: 2004Q3

REPORT INFORMATION
  Report Type: 
  Country: None (occurrence: None)
  Receive Date: 20040702
  Receipt Date: 20040623
  Transmission Date: 20050211
  Serious: No
  Sender: FDA-Public Use
  Company Number: A044-002-005065

PATIENT
  Sex: Male

DRUGS (1)
  1. ARICEPT [Suspect]
     Dosage: ORAL
     Route: 048

REACTIONS (1)
  - ARRHYTHMIA [None]
